FAERS Safety Report 8336162 (Version 2)
Quarter: 2017Q1

REPORT INFORMATION
  Report Type: Report from Study
  Country: US (occurrence: US)
  Receive Date: 20120113
  Receipt Date: 20170103
  Transmission Date: 20170429
  Serious: Yes (Other)
  Sender: FDA-Public Use
  Company Number: US-ROCHE-1028922

PATIENT

DRUGS (2)
  1. BEVACIZUMAB [Suspect]
     Active Substance: BEVACIZUMAB
     Indication: HEPATOCELLULAR CARCINOMA
     Route: 042
  2. SORAFENIB [Suspect]
     Active Substance: SORAFENIB
     Indication: HEPATOCELLULAR CARCINOMA
     Dosage: DAYS 1-28
     Route: 048

REACTIONS (23)
  - Fatigue [Unknown]
  - Vomiting [Unknown]
  - White blood cell count decreased [Unknown]
  - Blood bilirubin increased [Unknown]
  - Platelet count decreased [Unknown]
  - Lymphocyte count decreased [Unknown]
  - Blood potassium increased [Unknown]
  - Oesophageal ulcer [Unknown]
  - Nausea [Unknown]
  - Weight decreased [Unknown]
  - Urinary tract infection [Unknown]
  - Palmar-plantar erythrodysaesthesia syndrome [Unknown]
  - Hypophosphataemia [Unknown]
  - Hypertension [Unknown]
  - Dehydration [Unknown]
  - Electrocardiogram QT prolonged [Unknown]
  - Aspartate aminotransferase increased [Unknown]
  - Arrhythmia [Unknown]
  - Muscular weakness [Unknown]
  - Decreased appetite [Unknown]
  - Alanine aminotransferase increased [Unknown]
  - Hyponatraemia [Unknown]
  - Blood potassium decreased [Unknown]
